FAERS Safety Report 8137418-X (Version None)
Quarter: 2012Q1

REPORT INFORMATION
  Report Type: 
  Country: None (occurrence: None)
  Receive Date: 20120215
  Receipt Date: 20120206
  Transmission Date: 20120608
  Serious: Yes (Death, Other)
  Sender: FDA-Public Use
  Company Number: IL-TEVA-321439ISR

PATIENT
  Age: 87 Year
  Sex: Female

DRUGS (2)
  1. ETOPOSIDE [Suspect]
     Indication: NEUROENDOCRINE CARCINOMA OF THE SKIN
     Dosage: 75 MG/M2 DAYS 1-3 WEEKLY
     Route: 065
  2. CARBOPLATIN [Suspect]
     Indication: NEUROENDOCRINE CARCINOMA OF THE SKIN
     Dosage: AUC5 DAY 1 WEEKLY
     Route: 065

REACTIONS (6)
  - TUMOUR LYSIS SYNDROME [None]
  - RENAL FUNCTION TEST ABNORMAL [None]
  - PANCYTOPENIA [None]
  - DYSPNOEA [None]
  - RENAL FAILURE ACUTE [None]
  - PYREXIA [None]
